FAERS Safety Report 17786051 (Version 2)
Quarter: 2020Q2

REPORT INFORMATION
  Report Type: Spontaneous
  Country: PT (occurrence: PT)
  Receive Date: 20200513
  Receipt Date: 20200625
  Transmission Date: 20200714
  Serious: Yes (Life-Threatening)
  Sender: FDA-Public Use
  Company Number: PT-BEH-2020116950

PATIENT
  Age: 21 Year
  Sex: Female
  Weight: 55 kg

DRUGS (1)
  1. PRIVIGEN [Suspect]
     Active Substance: HUMAN IMMUNOGLOBULIN G
     Indication: NEUROMYELITIS OPTICA SPECTRUM DISORDER
     Dosage: 20 GRAM, QD
     Route: 042
     Dates: start: 20200420, end: 20200422

REACTIONS (3)
  - No adverse event [Unknown]
  - Meningitis aseptic [Unknown]
  - Product use in unapproved indication [Unknown]

NARRATIVE: CASE EVENT DATE: 20200421
